FAERS Safety Report 8887637 (Version 1)
Quarter: 2012Q4

REPORT INFORMATION
  Report Type: Spontaneous
  Country: US (occurrence: None)
  Receive Date: 20121101
  Receipt Date: 20121101
  Transmission Date: 20130627
  Serious: Yes (Hospitalization)
  Sender: FDA-Public Use
  Company Number: None

PATIENT
  Age: 63 Year
  Sex: Male
  Weight: 90.72 kg

DRUGS (2)
  1. RIVAROXABAN [Suspect]
     Indication: DVT PROPHYLAXIS
     Route: 048
     Dates: start: 20120922, end: 20121005
  2. RIVAROXABAN [Suspect]
     Indication: TOTAL KNEE REPLACEMENT
     Route: 048
     Dates: start: 20120922, end: 20121005

REACTIONS (1)
  - Wound haematoma [None]
